FAERS Safety Report 4470788-2 (Version None)
Quarter: 2004Q4

REPORT INFORMATION
  Report Type: 
  Country: None (occurrence: None)
  Receive Date: 20041006
  Receipt Date: 20040917
  Transmission Date: 20050328
  Serious: Yes (Hospitalization)
  Sender: FDA-Public Use
  Company Number: 6010825

PATIENT
  Age: 66 Year
  Sex: Male

DRUGS (10)
  1. DICLOFENAC SODIUM [Suspect]
  2. RIFAMPICIN [Suspect]
     Indication: STAPHYLOCOCCAL INFECTION
     Dosage: 600 MG
     Route: 048
     Dates: start: 20040210
  3. FRAGMIN [Concomitant]
  4. ACETAMINOPHEN [Concomitant]
  5. ZINACEF [Concomitant]
  6. ZOPICLONE TABLETS (ZOPICLONE) [Concomitant]
  7. XATRAL (ALFUZOSIN) [Concomitant]
  8. EMCONCOR (BISOPROLOL) [Concomitant]
  9. KETOGAN (KETOBEMIDONE HYDROCHLORIDE, DIMETHYL-3,3-DIPHENYL-1-METHYLALL [Concomitant]
  10. NAROP(ROPIVACAINE HYDROCHLORIDE) [Concomitant]

REACTIONS (4)
  - DRUG INEFFECTIVE [None]
  - HAEMOPTYSIS [None]
  - NEPHRITIS INTERSTITIAL [None]
  - PNEUMONITIS [None]
